FAERS Safety Report 8156298-X (Version None)
Quarter: 2012Q1

REPORT INFORMATION
  Report Type: 
  Country: None (occurrence: None)
  Receive Date: 20120222
  Receipt Date: 20110228
  Transmission Date: 20120608
  Serious: Yes (Other)
  Sender: FDA-Public Use
  Company Number: US-BRISTOL-MYERS SQUIBB COMPANY-15575855

PATIENT
  Age: 39 Year
  Sex: Female

DRUGS (4)
  1. KENALOG [Suspect]
  2. ALBUTEROL INHALER [Concomitant]
  3. VICODIN ES [Concomitant]
  4. ADVAIR DISKUS 100/50 [Concomitant]

REACTIONS (2)
  - INJECTION SITE PAIN [None]
  - INJECTION SITE ATROPHY [None]
